FAERS Safety Report 5476059-X (Version None)
Quarter: 2007Q3

REPORT INFORMATION
  Report Type: 
  Country: None (occurrence: None)
  Receive Date: 20070904
  Receipt Date: 20070622
  Transmission Date: 20080115
  Serious: Yes (Other)
  Sender: FDA-Public Use
  Company Number: 156648USA

PATIENT
  Age: 62 Year
  Sex: Female
  Weight: 59.4212 kg

DRUGS (6)
  1. METOCLOPRAMIDE [Suspect]
     Indication: GASTROOESOPHAGEAL REFLUX DISEASE
     Dosage: 40 MG (10 MG, 4 IN 1 D), ORAL
     Route: 048
     Dates: start: 20070108, end: 20070519
  2. COLESTIPOL HYDROCHLORIDE [Concomitant]
  3. SUCRALFATE [Concomitant]
  4. LANSOPRAZOLE [Concomitant]
  5. ESOMEPRAZOLE MAGNESIUM [Concomitant]
  6. VITAMINS [Concomitant]

REACTIONS (6)
  - ANXIETY [None]
  - ASTHENIA [None]
  - DEPRESSION [None]
  - MALAISE [None]
  - SOMNOLENCE [None]
  - SUICIDAL IDEATION [None]
